FAERS Safety Report 6803431-5 (Version None)
Quarter: 2010Q2

REPORT INFORMATION
  Report Type: 
  Country: None (occurrence: None)
  Receive Date: 20100628
  Receipt Date: 20100616
  Transmission Date: 20101027
  Serious: Yes (Death, Other)
  Sender: FDA-Public Use
  Company Number: JP-PFIZER INC-2010044553

PATIENT
  Age: 78 Year
  Sex: Male
  Weight: 50 kg

DRUGS (17)
  1. GABAPEN [Suspect]
     Indication: PAIN
     Dosage: 200 MG, 1X/DAY
     Route: 048
     Dates: start: 20100325, end: 20100330
  2. GABAPEN [Suspect]
     Dosage: 200 MG, 2X/DAY
     Route: 048
     Dates: start: 20100331, end: 20100406
  3. AMLODIN [Concomitant]
     Indication: HYPERTENSION
     Dosage: 5 MG, 1X/DAY
     Route: 048
     Dates: start: 20100312, end: 20100403
  4. PARIET [Concomitant]
     Dosage: 10 MG, 1X/DAY
     Route: 048
     Dates: start: 20100312, end: 20100403
  5. DEPAS [Concomitant]
     Indication: ANXIETY
     Dosage: 0.5 MG, 1X/DAY
     Route: 048
     Dates: start: 20100311, end: 20100403
  6. LOXONIN [Concomitant]
     Indication: PAIN
     Dosage: 60 MG, 3X/DAY
     Route: 048
     Dates: start: 20100311, end: 20100406
  7. MYONAL [Concomitant]
     Indication: PAIN
     Dosage: 50 MG, 3X/DAY
     Route: 048
     Dates: start: 20100311, end: 20100406
  8. VITAMEDIN CAPSULE [Concomitant]
     Dosage: 1 DF, 3X/DAY
     Route: 048
     Dates: start: 20100311, end: 20100406
  9. OXYCONTIN [Concomitant]
     Indication: PAIN
     Dosage: 5 MG, 2X/DAY
     Route: 048
     Dates: start: 20100306, end: 20100319
  10. OXYCONTIN [Concomitant]
     Dosage: 10 MG, 2X/DAY
     Route: 048
     Dates: start: 20100320, end: 20100325
  11. OXYCONTIN [Concomitant]
     Dosage: 5 MG, 3X/DAY
     Dates: start: 20100326, end: 20100406
  12. OXINORM [Concomitant]
     Indication: PAIN
     Dosage: 2.5 MG, UNK
     Route: 048
     Dates: start: 20100306, end: 20100406
  13. PURSENNID [Concomitant]
     Indication: CONSTIPATION
     Dosage: 12 MG, 1X/DAY
     Route: 048
     Dates: start: 20100317, end: 20100319
  14. PURSENNID [Concomitant]
     Dosage: 24 MG, 1X/DAY
     Route: 048
     Dates: start: 20100320, end: 20100325
  15. PURSENNID [Concomitant]
     Dosage: 12 MG, 1X/DAY
     Route: 048
     Dates: start: 20100326, end: 20100406
  16. NOVAMIN [Concomitant]
     Dosage: 5 MG, 3X/DAY
     Route: 048
     Dates: start: 20100320, end: 20100322
  17. FENTANYL [Concomitant]
     Indication: PAIN
     Dosage: 2.1 MG, 1X 3DAYS
     Route: 003
     Dates: start: 20100325, end: 20100326

REACTIONS (4)
  - CONSCIOUSNESS FLUCTUATING [None]
  - HEART RATE DECREASED [None]
  - PNEUMONIA [None]
  - URINE OUTPUT DECREASED [None]
